FAERS Safety Report 5082016-8 (Version None)
Quarter: 2006Q3

REPORT INFORMATION
  Report Type: 
  Country: None (occurrence: None)
  Receive Date: 20060811
  Receipt Date: 20060801
  Transmission Date: 20061208
  Serious: Yes (Life-Threatening, Hospitalization, Other)
  Sender: FDA-Public Use
  Company Number: 2006-00545

PATIENT
  Age: 50 Year
  Sex: Male
  Weight: 70 kg

DRUGS (7)
  1. VELCADE [Suspect]
     Indication: MULTIPLE MYELOMA
     Dosage: 2.60 MG, INTRAVENOUS
     Route: 042
     Dates: end: 20060228
  2. DEXAMETHASONE [Concomitant]
  3. DANATROL (DANAZOL) [Concomitant]
  4. SPECIAFOLDINE (FOLIC ACID) [Concomitant]
  5. VALACYCLOVIR [Concomitant]
  6. ATARAX [Concomitant]
  7. FRACTAL (FLUVASTATIN) [Concomitant]

REACTIONS (8)
  - DEHYDRATION [None]
  - HAEMODIALYSIS [None]
  - HAEMOGLOBIN DECREASED [None]
  - NEUROTOXICITY [None]
  - PLATELET COUNT DECREASED [None]
  - RENAL FAILURE ACUTE [None]
  - RENAL TUBULAR DISORDER [None]
  - WHITE BLOOD CELL COUNT DECREASED [None]
